FAERS Safety Report 25981596 (Version 2)
Quarter: 2025Q4

REPORT INFORMATION
  Report Type: Report from Study
  Country: US (occurrence: US)
  Receive Date: 20251030
  Receipt Date: 20251211
  Transmission Date: 20260117
  Serious: Yes (Hospitalization)
  Sender: ABBVIE
  Company Number: US-ABBVIE-6525451

PATIENT
  Age: 76 Year
  Sex: Female

DRUGS (1)
  1. LUMIGAN [Suspect]
     Active Substance: BIMATOPROST
     Indication: Glaucoma
     Dosage: FORM STRENGTH: 0.1 MILLIGRAM?FREQUENCY TEXT: 1 DROP IN EACH EYE EVERY NIGHT, LUMIGAN 0.01%, PATIE...
     Route: 047

REACTIONS (2)
  - Female reproductive tract disorder [Recovering/Resolving]
  - Dysmenorrhoea [Not Recovered/Not Resolved]

NARRATIVE: CASE EVENT DATE: 20251001
